FAERS Safety Report 16577064 (Version 1)
Quarter: 2019Q3

REPORT INFORMATION
  Report Type: Spontaneous
  Country: US (occurrence: US)
  Receive Date: 20190715
  Receipt Date: 20190715
  Transmission Date: 20191004
  Serious: Yes (Other)
  Sender: FDA-Public Use
  Company Number: None

PATIENT
  Age: 47 Year
  Sex: Female
  Weight: 115.65 kg

DRUGS (11)
  1. ERTAPENEM. [Suspect]
     Active Substance: ERTAPENEM SODIUM
     Indication: HIDRADENITIS
     Route: 042
     Dates: start: 20190702, end: 20190712
  2. BENICAR 40-25MG Q UD [Concomitant]
  3. OLANZAPINE 10MG QHS [Concomitant]
  4. CUBICIN RF [Suspect]
     Active Substance: DAPTOMYCIN
     Indication: SEPSIS
     Route: 042
     Dates: start: 20190702, end: 20190712
  5. ERTAPENEM. [Suspect]
     Active Substance: ERTAPENEM SODIUM
     Indication: SEPSIS
     Route: 042
     Dates: start: 20190702, end: 20190712
  6. LEVEMIR  10 UNITS QHS [Concomitant]
  7. FERROUS SUFATE 325 TID [Concomitant]
  8. FOLVITE 1 MG QD [Concomitant]
  9. MELOXICAM 15MG QD PRN [Concomitant]
  10. METFORMIN 850MG TID [Concomitant]
  11. CUBICIN RF [Suspect]
     Active Substance: DAPTOMYCIN
     Indication: HIDRADENITIS
     Route: 042
     Dates: start: 20190702, end: 20190712

REACTIONS (2)
  - Blood calcium decreased [None]
  - Blood creatine phosphokinase increased [None]

NARRATIVE: CASE EVENT DATE: 20190712
